FAERS Safety Report 5136770-7 (Version None)
Quarter: 2006Q4

REPORT INFORMATION
  Report Type: 
  Country: None (occurrence: None)
  Receive Date: 20061023
  Receipt Date: 20061010
  Transmission Date: 20070319
  Serious: Yes (Hospitalization, Disabling)
  Sender: FDA-Public Use
  Company Number: 2006011169

PATIENT
  Age: 57 Year
  Sex: Male
  Weight: 94.8 kg

DRUGS (7)
  1. SUTENT [Suspect]
     Indication: GASTROINTESTINAL STROMAL TUMOUR
     Dosage: 50 MG (50 MG, 1 IN 1 D), ORAL
     Route: 048
     Dates: start: 20060106, end: 20060222
  2. ATENOLOL [Concomitant]
  3. NORVASC [Concomitant]
  4. LIPITOR [Concomitant]
  5. ASPIRIN [Concomitant]
  6. NITROGLYCERIN [Concomitant]
  7. HYTRIN [Concomitant]

REACTIONS (7)
  - CELLULITIS [None]
  - GASTROINTESTINAL STROMAL TUMOUR [None]
  - GUILLAIN-BARRE SYNDROME [None]
  - MALIGNANT NEOPLASM PROGRESSION [None]
  - NEUROPATHY PERIPHERAL [None]
  - PALMAR-PLANTAR ERYTHRODYSAESTHESIA SYNDROME [None]
  - PANCYTOPENIA [None]
